FAERS Safety Report 9394010 (Version 3)
Quarter: 2013Q3

REPORT INFORMATION
  Report Type: Spontaneous
  Country: GB (occurrence: GB)
  Receive Date: 20130710
  Receipt Date: 20130819
  Transmission Date: 20140515
  Serious: Yes (Other)
  Sender: FDA-Public Use
  Company Number: GB-MYLANLABS-2013S1014555

PATIENT
  Age: 63 Year
  Sex: Male

DRUGS (3)
  1. CLOPIDOGREL [Suspect]
     Indication: PRODUCT USED FOR UNKNOWN INDICATION
  2. XARELTO [Interacting]
     Indication: CEREBROVASCULAR ACCIDENT PROPHYLAXIS
     Dates: start: 20130528, end: 20130625
  3. XARELTO [Interacting]
     Indication: ATRIAL FIBRILLATION
     Dates: start: 20130528, end: 20130625

REACTIONS (2)
  - Drug interaction [Unknown]
  - Haemorrhage [Recovered/Resolved]
